FAERS Safety Report 6708706-6 (Version None)
Quarter: 2010Q2

REPORT INFORMATION
  Report Type: 
  Country: None (occurrence: None)
  Receive Date: 20100503
  Receipt Date: 20100426
  Transmission Date: 20101027
  Serious: Yes (Death, Hospitalization)
  Sender: FDA-Public Use
  Company Number: US-AMGEN-QUU404391

PATIENT
  Sex: Male
  Weight: 101 kg

DRUGS (1)
  1. NPLATE [Suspect]
     Indication: IDIOPATHIC THROMBOCYTOPENIC PURPURA
     Dates: start: 20081023, end: 20090115

REACTIONS (10)
  - CHRONIC MYELOMONOCYTIC LEUKAEMIA [None]
  - DEEP VEIN THROMBOSIS [None]
  - HYPOKALAEMIA [None]
  - HYPOMAGNESAEMIA [None]
  - IDIOPATHIC THROMBOCYTOPENIC PURPURA [None]
  - LETHARGY [None]
  - MENTAL DISORDER [None]
  - PANCYTOPENIA [None]
  - PNEUMONIA ASPIRATION [None]
  - SEPSIS [None]
